FAERS Safety Report 11832343 (Version 1)
Quarter: 2015Q4

REPORT INFORMATION
  Report Type: Report from Study
  Country: None (occurrence: US)
  Receive Date: 20151214
  Receipt Date: 20151214
  Transmission Date: 20160305
  Serious: No
  Sender: FDA-Public Use
  Company Number: US-BIOGEN-2014BI006140

PATIENT
  Age: 72 Year
  Sex: Female

DRUGS (30)
  1. AMLODIPINE BESYLATE. [Concomitant]
     Active Substance: AMLODIPINE BESYLATE
  2. PROAIR HFA [Concomitant]
     Active Substance: ALBUTEROL SULFATE
  3. ALIGN [Concomitant]
     Active Substance: BIFIDOBACTERIUM LONGUM SUBSP. INFANTIS
  4. EVISTA [Concomitant]
     Active Substance: RALOXIFENE HYDROCHLORIDE
  5. LOVAZA [Concomitant]
     Active Substance: OMEGA-3-ACID ETHYL ESTERS
  6. SPIRONOLACTONE. [Concomitant]
     Active Substance: SPIRONOLACTONE
  7. VITAMIN B COMPLEX [Concomitant]
     Active Substance: CYANOCOBALAMIN\DEXPANTHENOL\NIACINAMIDE\PYRIDOXINE HYDROCHLORIDE\RIBOFLAVIN 5^-PHOSPHATE SODIUM\THIAMINE HYDROCHLORIDE\VITAMIN B COMPLEX
  8. ASPIR LOW [Concomitant]
     Active Substance: ASPIRIN
  9. PREMARIN [Concomitant]
     Active Substance: ESTROGENS, CONJUGATED
  10. SINGULAIR [Concomitant]
     Active Substance: MONTELUKAST SODIUM
  11. VITAMIN C ER [Concomitant]
  12. ANUSOL-HC [Concomitant]
  13. BENICAR [Concomitant]
     Active Substance: OLMESARTAN MEDOXOMIL
  14. FLUTICASONE PROPIONATE. [Concomitant]
     Active Substance: FLUTICASONE PROPIONATE
  15. TECFIDERA [Suspect]
     Active Substance: DIMETHYL FUMARATE
     Indication: MULTIPLE SCLEROSIS
     Route: 048
  16. MIRALAX [Concomitant]
     Active Substance: POLYETHYLENE GLYCOL 3350
  17. NEXIUM [Concomitant]
     Active Substance: ESOMEPRAZOLE MAGNESIUM
     Route: 042
  18. LEVOTHYROXINE SODIUM. [Concomitant]
     Active Substance: LEVOTHYROXINE SODIUM
  19. FOLIC ACID. [Concomitant]
     Active Substance: FOLIC ACID
  20. LEXAPRO [Concomitant]
     Active Substance: ESCITALOPRAM OXALATE
  21. POLYETHYLENE GLYCOL 1000 [Concomitant]
     Active Substance: POLYETHYLENE GLYCOL 1000
  22. CALCIUM/MAGNESIUM/ZINC [Concomitant]
  23. CHLORTHALIDONE. [Concomitant]
     Active Substance: CHLORTHALIDONE
  24. QVAR [Concomitant]
     Active Substance: BECLOMETHASONE DIPROPIONATE
  25. TECFIDERA [Suspect]
     Active Substance: DIMETHYL FUMARATE
     Route: 048
  26. FLONASE [Concomitant]
     Active Substance: FLUTICASONE PROPIONATE
  27. MAGNESIUM [Concomitant]
     Active Substance: MAGNESIUM
  28. SYNTHROID [Concomitant]
     Active Substance: LEVOTHYROXINE SODIUM
  29. TYLENOL ARTHRITIS PAIN [Concomitant]
     Active Substance: ACETAMINOPHEN
  30. MONTELUKAST SODIUM. [Concomitant]
     Active Substance: MONTELUKAST SODIUM

REACTIONS (7)
  - Flushing [Unknown]
  - Psychotic disorder [Recovered/Resolved]
  - Headache [Unknown]
  - Depression [Recovered/Resolved]
  - Eye pruritus [Not Recovered/Not Resolved]
  - Pruritus [Unknown]
  - Spinal pain [Unknown]

NARRATIVE: CASE EVENT DATE: 201511
